FAERS Safety Report 7283723-9 (Version None)
Quarter: 2011Q1

REPORT INFORMATION
  Report Type: 
  Country: None (occurrence: None)
  Receive Date: 20110209
  Receipt Date: 20110128
  Transmission Date: 20110831
  Serious: Yes (Hospitalization, Other)
  Sender: FDA-Public Use
  Company Number: US-ELI_LILLY_AND_COMPANY-US201102000042

PATIENT
  Age: 70 Year
  Sex: Male

DRUGS (1)
  1. CYMBALTA [Suspect]
     Indication: URINARY INCONTINENCE
     Dosage: 60 MG, DAILY (1/D)

REACTIONS (2)
  - URINARY INCONTINENCE [None]
  - OFF LABEL USE [None]
